FAERS Safety Report 4375514-3 (Version None)
Quarter: 2004Q2

REPORT INFORMATION
  Report Type: 
  Country: None (occurrence: None)
  Receive Date: 20040610
  Receipt Date: 20031107
  Transmission Date: 20050107
  Serious: Yes (Death, Hospitalization)
  Sender: FDA-Public Use
  Company Number: GB-ROCHE-351308

PATIENT
  Age: 72 Year
  Sex: Male
  Weight: 77 kg

DRUGS (8)
  1. CAPECITABINE [Suspect]
     Dosage: INTERMITTENT THERAPY OF THREE WEEKS TREATMENT AND ONE WEEK REST.
     Route: 048
     Dates: start: 20031007, end: 20031029
  2. GEMCITABINE [Suspect]
     Dosage: TAKEN ON DAYS 1, 8 AND 15 OF A 21 DAY CYCLE.
     Route: 042
     Dates: start: 20031007, end: 20031022
  3. METOCLOPRAMIDE [Concomitant]
     Indication: PREMEDICATION
     Route: 048
     Dates: start: 20031007, end: 20031022
  4. DEXAMETHASONE [Concomitant]
     Indication: PREMEDICATION
     Route: 048
     Dates: start: 20031007, end: 20031022
  5. CREON [Concomitant]
     Route: 048
     Dates: start: 20021120
  6. INSULIN MIXTARD [Concomitant]
  7. 1 CONCOMITANT DRUG [Concomitant]
     Dosage: DRUG NAME REPORTED AS XALFAL.
     Route: 048
  8. CO-DYDRAMOL [Concomitant]
     Route: 048

REACTIONS (9)
  - ASTHENIA [None]
  - BLOOD GLUCOSE INCREASED [None]
  - DEHYDRATION [None]
  - DEPRESSED LEVEL OF CONSCIOUSNESS [None]
  - DISSEMINATED INTRAVASCULAR COAGULATION [None]
  - LOWER RESPIRATORY TRACT INFECTION [None]
  - PANCREATIC CARCINOMA [None]
  - PLEURAL EFFUSION [None]
  - PYREXIA [None]
